FAERS Safety Report 24593587 (Version 1)
Quarter: 2024Q4

REPORT INFORMATION
  Report Type: Spontaneous
  Country: US (occurrence: None)
  Receive Date: 20241108
  Receipt Date: 20241108
  Transmission Date: 20250114
  Serious: Yes (Hospitalization)
  Sender: Public
  Company Number: None

PATIENT
  Age: 84 Year
  Sex: Female
  Weight: 70.8 kg

DRUGS (2)
  1. FLUOROURACIL [Suspect]
     Active Substance: FLUOROURACIL
     Dates: end: 20241028
  2. ELOXATIN [Suspect]
     Active Substance: OXALIPLATIN
     Dates: end: 20241028

REACTIONS (8)
  - Urinary tract infection [None]
  - Fatigue [None]
  - Asthenia [None]
  - Fall [None]
  - Urinary tract infection bacterial [None]
  - Culture urine positive [None]
  - Pseudomonas infection [None]
  - Atrial fibrillation [None]

NARRATIVE: CASE EVENT DATE: 20241102
